FAERS Safety Report 10467414 (Version 5)
Quarter: 2016Q1

REPORT INFORMATION
  Report Type: Spontaneous
  Country: US (occurrence: US)
  Receive Date: 20140922
  Receipt Date: 20160204
  Transmission Date: 20160525
  Serious: Yes (Hospitalization, Disabling, Other)
  Sender: FDA-Public Use
  Company Number: US-009507513-1409USA010361

PATIENT
  Sex: Female
  Weight: 90.7 kg

DRUGS (2)
  1. FOSAMAX [Suspect]
     Active Substance: ALENDRONATE SODIUM
     Indication: OSTEOPENIA
     Dosage: 70 MG, UNK
     Route: 048
     Dates: start: 20040202, end: 2005
  2. FOSAMAX [Suspect]
     Active Substance: ALENDRONATE SODIUM
     Indication: OSTEOPOROSIS
     Dosage: 10 MG, QD
     Route: 048
     Dates: start: 199908

REACTIONS (42)
  - Intramedullary rod insertion [Unknown]
  - Incision site haemorrhage [Unknown]
  - Gastrooesophageal reflux disease [Unknown]
  - Complication associated with device [Unknown]
  - Rotator cuff repair [Unknown]
  - Medical device removal [Unknown]
  - Arthropathy [Unknown]
  - Bursitis [Unknown]
  - Arthritis [Unknown]
  - Complication associated with device [Unknown]
  - Anaemia [Unknown]
  - Fracture delayed union [Recovered/Resolved]
  - Ovarian disorder [Unknown]
  - Knee deformity [Unknown]
  - Femur fracture [Recovering/Resolving]
  - Swelling [Unknown]
  - Pneumonia [Unknown]
  - Incision site erythema [Unknown]
  - Depression [Not Recovered/Not Resolved]
  - Joint crepitation [Unknown]
  - Kyphosis [Unknown]
  - Fracture delayed union [Unknown]
  - Carpal tunnel syndrome [Unknown]
  - Femur fracture [Recovered/Resolved]
  - Anxiety [Unknown]
  - Migraine [Not Recovered/Not Resolved]
  - Fall [Unknown]
  - Rotator cuff syndrome [Unknown]
  - Headache [Unknown]
  - Pyrexia [Unknown]
  - Abdominal operation [Unknown]
  - Fracture delayed union [Recovered/Resolved]
  - Low turnover osteopathy [Unknown]
  - Tonsillar disorder [Unknown]
  - Discomfort [Unknown]
  - Rotator cuff syndrome [Unknown]
  - Arthralgia [Unknown]
  - Hepatic steatosis [Unknown]
  - Muscle atrophy [Unknown]
  - Sleep apnoea syndrome [Unknown]
  - Rotator cuff syndrome [Unknown]
  - Osteoarthritis [Unknown]

NARRATIVE: CASE EVENT DATE: 2003
